FAERS Safety Report 8354179-X (Version None)
Quarter: 2012Q2

REPORT INFORMATION
  Report Type: 
  Country: None (occurrence: None)
  Receive Date: 20120511
  Receipt Date: 20120508
  Transmission Date: 20120825
  Serious: Yes (Other)
  Sender: FDA-Public Use
  Company Number: PHHY2012ES039171

PATIENT
  Age: 46 Year
  Sex: Male

DRUGS (2)
  1. RIBAVIRIN [Suspect]
     Indication: HEPATITIS C
  2. PEGINTERFERON ALFA-2A [Suspect]
     Dosage: 180 UG, PER WEEK

REACTIONS (4)
  - PSORIASIS [None]
  - NAIL PSORIASIS [None]
  - INJECTION SITE RASH [None]
  - RASH GENERALISED [None]
